FAERS Safety Report 21471578 (Version 2)
Quarter: 2022Q4

REPORT INFORMATION
  Report Type: Spontaneous
  Country: FR (occurrence: None)
  Receive Date: 20221018
  Receipt Date: 20221021
  Transmission Date: 20230113
  Serious: Yes (Life-Threatening, Hospitalization, Other)
  Sender: FDA-Public Use
  Company Number: 2022A347271

PATIENT
  Age: 17349 Day
  Sex: Female

DRUGS (1)
  1. FASENRA [Suspect]
     Active Substance: BENRALIZUMAB
     Indication: Asthma
     Route: 058

REACTIONS (2)
  - Respiratory distress [Not Recovered/Not Resolved]
  - Laryngeal dyspnoea [Not Recovered/Not Resolved]

NARRATIVE: CASE EVENT DATE: 20221006
